FAERS Safety Report 7345557-6 (Version None)
Quarter: 2011Q1

REPORT INFORMATION
  Report Type: 
  Country: None (occurrence: None)
  Receive Date: 20110310
  Receipt Date: 20110304
  Transmission Date: 20110831
  Serious: Yes (Other)
  Sender: FDA-Public Use
  Company Number: US-US-EMD SERONO, INC.-7039320

PATIENT
  Sex: Female
  Weight: 84 kg

DRUGS (6)
  1. REBIF [Suspect]
     Route: 058
     Dates: start: 20100501, end: 20100801
  2. CORTISONE CREAM [Concomitant]
     Indication: SEASONAL ALLERGY
  3. REBIF [Suspect]
     Route: 058
     Dates: start: 20100401, end: 20100501
  4. REBIF [Suspect]
     Indication: MULTIPLE SCLEROSIS
     Route: 058
     Dates: start: 20100316, end: 20100401
  5. BENADRYL [Concomitant]
     Indication: SEASONAL ALLERGY
  6. REBIF [Suspect]
     Route: 058
     Dates: start: 20100801

REACTIONS (9)
  - HASHITOXICOSIS [None]
  - INJECTION SITE ERYTHEMA [None]
  - INJECTION SITE REACTION [None]
  - UNEVALUABLE EVENT [None]
  - THYROID NEOPLASM [None]
  - INJECTION SITE PRURITUS [None]
  - BASEDOW'S DISEASE [None]
  - PRURITUS [None]
  - WHITE BLOOD CELL COUNT ABNORMAL [None]
